FAERS Safety Report 7564546-X (Version None)
Quarter: 2011Q2

REPORT INFORMATION
  Report Type: 
  Country: None (occurrence: None)
  Receive Date: 20110622
  Receipt Date: 20100910
  Transmission Date: 20111010
  Serious: Yes (Other)
  Sender: FDA-Public Use
  Company Number: US-MYLANLABS-2010S1009024

PATIENT
  Age: 44 Year
  Sex: Male

DRUGS (7)
  1. CLOZAPINE [Suspect]
     Dates: start: 20100603
  2. CLOZAPINE [Suspect]
     Dates: end: 20100527
  3. CLOZAPINE [Suspect]
     Dates: end: 20100527
  4. SERTRALINE HYDROCHLORIDE [Concomitant]
  5. CLOZAPINE [Suspect]
     Dates: start: 20100603
  6. LISINOPRIL AND HYDROCHLOROTHIAZIDE [Concomitant]
  7. REQUIP [Concomitant]

REACTIONS (2)
  - GRANULOCYTOPENIA [None]
  - LEUKOPENIA [None]
